FAERS Safety Report 19483801 (Version 2)
Quarter: 2021Q3

REPORT INFORMATION
  Report Type: Report from Study
  Country: KR (occurrence: KR)
  Receive Date: 20210701
  Receipt Date: 20210708
  Transmission Date: 20211014
  Serious: Yes (Hospitalization)
  Sender: FDA-Public Use
  Company Number: KR-JNJFOC-20210544990

PATIENT
  Age: 61 Year
  Sex: Female

DRUGS (2)
  1. LAZERTINIB. [Suspect]
     Active Substance: LAZERTINIB
     Indication: NON-SMALL CELL LUNG CANCER
     Dosage: 240 (UNIT NOT PROVIDED)?INTERRUPTED ON 22?MAY?2021
     Route: 048
     Dates: start: 20210121, end: 20210521
  2. AMIVANTAMAB. [Suspect]
     Active Substance: AMIVANTAMAB
     Indication: NON-SMALL CELL LUNG CANCER
     Dosage: 1050 (UNIT NOT PROVIDED)?EVERY WEEK/EVERY 2 WEEKS
     Route: 042
     Dates: start: 20210121, end: 20210331

REACTIONS (1)
  - Pneumonia cytomegaloviral [Recovered/Resolved]

NARRATIVE: CASE EVENT DATE: 20210522
